FAERS Safety Report 20920139 (Version 3)
Quarter: 2023Q4

REPORT INFORMATION
  Report Type: Spontaneous
  Country: US (occurrence: US)
  Receive Date: 20220606
  Receipt Date: 20231201
  Transmission Date: 20240110
  Serious: Yes (Other)
  Sender: FDA-Public Use
  Company Number: US-BRISTOL-MYERS SQUIBB COMPANY-2022-038321

PATIENT
  Age: 53 Year
  Sex: Male

DRUGS (1)
  1. POMALYST [Suspect]
     Active Substance: POMALIDOMIDE
     Indication: Plasma cell myeloma
     Dosage: QD FOR 21 DAYS ON, 7 OFF
     Route: 048
     Dates: start: 202201

REACTIONS (3)
  - Treatment noncompliance [Unknown]
  - Product dose omission issue [Unknown]
  - Tuberculosis [Unknown]

NARRATIVE: CASE EVENT DATE: 20231017
